FAERS Safety Report 16502273 (Version 1)
Quarter: 2019Q3

REPORT INFORMATION
  Report Type: Spontaneous
  Country: US (occurrence: US)
  Receive Date: 20190630
  Receipt Date: 20190630
  Transmission Date: 20191004
  Serious: Yes (Other)
  Sender: FDA-Public Use
  Company Number: None

PATIENT
  Age: 43 Year
  Sex: Female
  Weight: 90 kg

DRUGS (3)
  1. ALBUTEROL. [Concomitant]
     Active Substance: ALBUTEROL
  2. LOSARTAN. [Concomitant]
     Active Substance: LOSARTAN
  3. QVAR REDIHALER [Suspect]
     Active Substance: BECLOMETHASONE DIPROPIONATE
     Indication: ASTHMA
     Dosage: ?          QUANTITY:1 PUFF(S);?
     Route: 048
     Dates: start: 20180601, end: 20190630

REACTIONS (2)
  - Asthma [None]
  - Incorrect dose administered by device [None]

NARRATIVE: CASE EVENT DATE: 20190628
